FAERS Safety Report 8866827 (Version 1)
Quarter: 2012Q4

REPORT INFORMATION
  Report Type: 
  Country: US (occurrence: US)
  Receive Date: 20121025
  Receipt Date: 20121025
  Transmission Date: 20130627
  Serious: No
  Sender: FDA-Public Use
  Company Number: US-AMGEN-USASP2012013481

PATIENT
  Age: 52 Year
  Sex: Female

DRUGS (2)
  1. ENBREL [Suspect]
     Indication: RHEUMATOID ARTHRITIS
     Dosage: UNK UNK, qwk
     Route: 058
     Dates: start: 2012
  2. ARAVA [Concomitant]
     Dosage: UNK

REACTIONS (3)
  - Oedema peripheral [Unknown]
  - Staphylococcal infection [Not Recovered/Not Resolved]
  - Injection site swelling [Unknown]
